FAERS Safety Report 5115311-4 (Version None)
Quarter: 2006Q3

REPORT INFORMATION
  Report Type: 
  Country: None (occurrence: None)
  Receive Date: 20060920
  Receipt Date: 20060908
  Transmission Date: 20061208
  Serious: Yes (Other)
  Sender: FDA-Public Use
  Company Number: CAWYE688711AUG06

PATIENT
  Age: 19 Year
  Sex: Female

DRUGS (2)
  1. EFFEXOR XR [Suspect]
     Dosage: SEE IMAGE, ORAL
     Route: 048
     Dates: start: 20050501, end: 20060201
  2. EFFEXOR XR [Suspect]
     Dosage: SEE IMAGE, ORAL
     Route: 048
     Dates: start: 20060201

REACTIONS (6)
  - CRYING [None]
  - DRUG DEPENDENCE [None]
  - DRUG WITHDRAWAL SYNDROME [None]
  - HOSTILITY [None]
  - INSOMNIA [None]
  - PARAESTHESIA [None]
